FAERS Safety Report 19921103 (Version 1)
Quarter: 2021Q4

REPORT INFORMATION
  Report Type: Spontaneous
  Country: CN (occurrence: CN)
  Receive Date: 20211005
  Receipt Date: 20211005
  Transmission Date: 20220303
  Serious: Yes (Life-Threatening, Other)
  Sender: FDA-Public Use
  Company Number: CN-BAXTER-2021BAX027167

PATIENT
  Age: 40 Year
  Sex: Female
  Weight: 60 kg

DRUGS (12)
  1. CYCLOPHOSPHAMIDE [Suspect]
     Active Substance: CYCLOPHOSPHAMIDE
     Indication: Breast cancer female
     Dosage: CYCLOPHOSPHAMIDE FOR INJECTION +0.9% SODIUM CHLORIDE INJECTION; 1-5 CYCLES
     Route: 041
  2. CYCLOPHOSPHAMIDE [Suspect]
     Active Substance: CYCLOPHOSPHAMIDE
     Dosage: CYCLOPHOSPHAMIDE FOR INJECTION 0.8G DISSOLVED IN 250ML 0.9% SODIUM CHLORIDE INJECTION; 6TH CYCLE
     Route: 041
     Dates: start: 20190318, end: 20190318
  3. SODIUM CHLORIDE [Suspect]
     Active Substance: SODIUM CHLORIDE
     Indication: Medication dilution
     Dosage: CYCLOPHOSPHAMIDE FOR INJECTION (DISSOLVED IN 0.9% SODIUM CHLORIDE INJECTION);1-5 CYCLES
     Route: 041
  4. SODIUM CHLORIDE [Suspect]
     Active Substance: SODIUM CHLORIDE
     Dosage: DOCETAXEL INJECTION(DISSOLVED IN 0.9% SODIUM CHLORIDE INJECTION) 1-5 CYCLES
     Route: 041
  5. SODIUM CHLORIDE [Suspect]
     Active Substance: SODIUM CHLORIDE
     Dosage: CYCLOPHOSPHAMIDE FOR INJECTION 0.8G DISSOLVED IN 250ML 0.9% SODIUM CHLORIDE INJECTION; 6TH CYCLE
     Route: 041
     Dates: start: 20190318, end: 20190318
  6. SODIUM CHLORIDE [Suspect]
     Active Substance: SODIUM CHLORIDE
     Dosage: DOCETAXEL INJECTION 120MG (DISSOLVED IN 250ML 0.9% SODIUM CHLORIDE INJECTION); 6TH CYCLE
     Route: 041
     Dates: start: 20190318, end: 20190318
  7. DEXTROSE [Suspect]
     Active Substance: DEXTROSE
     Indication: Medication dilution
     Dosage: EPIRUBICIN INJECTION  (DISSOLVED IN 5% GLUCOSE INJECTION); 1-5 CYCLE
     Route: 041
  8. DEXTROSE [Suspect]
     Active Substance: DEXTROSE
     Dosage: EPIRUBICIN INJECTION 100MG (DISSOLVED IN 250ML 5% GLUCOSE INJECTION); 6TH CYCLE
     Route: 041
     Dates: start: 20190318, end: 20190318
  9. EPIRUBICIN HYDROCHLORIDE [Suspect]
     Active Substance: EPIRUBICIN HYDROCHLORIDE
     Indication: Breast cancer female
     Dosage: EPIRUBICIN INJECTION +5% GLUCOSE INJECTION; 1-5 CYCLES
     Route: 041
  10. EPIRUBICIN HYDROCHLORIDE [Suspect]
     Active Substance: EPIRUBICIN HYDROCHLORIDE
     Dosage: EPIRUBICIN INJECTION 100MG+250ML 5% GLUCOSE INJECTION; 6TH CYCLE
     Route: 041
     Dates: start: 20190318, end: 20190318
  11. DOCETAXEL [Suspect]
     Active Substance: DOCETAXEL
     Indication: Breast cancer female
     Dosage: DOCETAXEL INJECTION+0.9% SODIUM CHLORIDE INJECTION; 1-5 CYCLES
     Route: 041
  12. DOCETAXEL [Suspect]
     Active Substance: DOCETAXEL
     Dosage: DOCETAXEL INJECTION 120MG (DISSOLVED IN 250ML 0.9% SODIUM CHLORIDE INJECTION); 6TH CYCLE
     Route: 041
     Dates: start: 20190318, end: 20190318

REACTIONS (2)
  - Myelosuppression [Recovered/Resolved]
  - Myelosuppression [Recovered/Resolved]

NARRATIVE: CASE EVENT DATE: 20190324
